FAERS Safety Report 10475140 (Version 2)
Quarter: 2014Q4

REPORT INFORMATION
  Report Type: Report from Study
  Country: US (occurrence: None)
  Receive Date: 20140922
  Receipt Date: 20141002
  Transmission Date: 20150528
  Serious: Yes (Hospitalization)
  Sender: FDA-Public Use
  Company Number: 140356

PATIENT
  Age: 68 Year
  Sex: Female

DRUGS (1)
  1. SUPREP BOWEL PREP [Suspect]
     Active Substance: MAGNESIUM SULFATE\POTASSIUM SULFATE\SODIUM SULFATE
     Indication: OFF LABEL USE
     Dosage: 1X 6OZ BOTTLE 1X PO
     Route: 048
     Dates: start: 20140910, end: 20140910

REACTIONS (6)
  - Incoherent [None]
  - Memory impairment [None]
  - Polydipsia [None]
  - Blood sodium decreased [None]
  - Gait disturbance [None]
  - Hallucination, visual [None]

NARRATIVE: CASE EVENT DATE: 20140911
